FAERS Safety Report 5390363-5 (Version None)
Quarter: 2007Q3

REPORT INFORMATION
  Report Type: 
  Country: None (occurrence: None)
  Receive Date: 20070718
  Receipt Date: 20070706
  Transmission Date: 20080115
  Serious: Yes (Disabling, Other)
  Sender: FDA-Public Use
  Company Number: JP-PFIZER INC-2007011321

PATIENT
  Sex: Female
  Weight: 54.5 kg

DRUGS (7)
  1. GENOTROPIN [Suspect]
     Indication: HYPOPITUITARISM
     Route: 058
     Dates: start: 20061207, end: 20070204
  2. DEPAKENE [Suspect]
     Indication: EPILEPSY
     Dosage: DAILY DOSE:800MG
     Route: 048
     Dates: start: 20060930, end: 20070221
  3. DEPAKENE [Suspect]
     Dosage: DAILY DOSE:400MG
     Route: 048
  4. CORTRIL [Concomitant]
     Indication: HYPOPITUITARISM
     Dosage: DAILY DOSE:10MG
     Route: 048
  5. THYRADIN S [Concomitant]
     Indication: HYPOPITUITARISM
     Dosage: DAILY DOSE:100MCG
     Route: 048
  6. DESMOPRESSIN [Concomitant]
     Indication: HYPOPITUITARISM
     Dosage: TEXT:2 PUSHES
     Route: 055
  7. ASPARA-CA [Concomitant]
     Indication: OSTEOPOROSIS
     Route: 048

REACTIONS (4)
  - ASTHENIA [None]
  - DECREASED ACTIVITY [None]
  - HYPONATRAEMIA [None]
  - SOMNOLENCE [None]
